FAERS Safety Report 15930132 (Version 3)
Quarter: 2019Q1

REPORT INFORMATION
  Report Type: Report from Study
  Country: None (occurrence: US)
  Receive Date: 20190206
  Receipt Date: 20190221
  Transmission Date: 20190417
  Serious: Yes (Other)
  Sender: FDA-Public Use
  Company Number: US-ABBVIE-18K-163-2467306-00

PATIENT
  Age: 48 Year
  Sex: Male
  Weight: 108.96 kg

DRUGS (7)
  1. TOPISOL [Concomitant]
     Indication: GASTRIC DISORDER
  2. HUMIRA [Suspect]
     Active Substance: ADALIMUMAB
     Indication: UVEITIS
     Route: 058
     Dates: start: 2017
  3. ACYCLOVIR. [Concomitant]
     Active Substance: ACYCLOVIR
     Indication: PRODUCT USED FOR UNKNOWN INDICATION
  4. MURO [Concomitant]
     Indication: EYE DISORDER
  5. LOSARTAN. [Concomitant]
     Active Substance: LOSARTAN
     Indication: HYPERTENSION
  6. SIMVASTATIN. [Concomitant]
     Active Substance: SIMVASTATIN
     Indication: BLOOD CHOLESTEROL INCREASED
  7. DUREZOL [Concomitant]
     Active Substance: DIFLUPREDNATE
     Indication: EYE DISORDER

REACTIONS (4)
  - Ocular discomfort [Recovering/Resolving]
  - Vision blurred [Recovering/Resolving]
  - Blindness [Recovering/Resolving]
  - Injection site pain [Unknown]

NARRATIVE: CASE EVENT DATE: 2017
